FAERS Safety Report 11185984 (Version 7)
Quarter: 2016Q2

REPORT INFORMATION
  Report Type: Report from Study
  Country: CA (occurrence: CA)
  Receive Date: 20150612
  Receipt Date: 20160531
  Transmission Date: 20160815
  Serious: Yes (Hospitalization)
  Sender: FDA-Public Use
  Company Number: PHHY2015CA066638

PATIENT
  Age: 58 Year
  Sex: Female

DRUGS (2)
  1. PERINDOPRIL [Concomitant]
     Active Substance: PERINDOPRIL
     Indication: PRODUCT USED FOR UNKNOWN INDICATION
     Route: 065
  2. SANDOSTATIN LAR DEPOT [Suspect]
     Active Substance: OCTREOTIDE ACETATE
     Indication: NEUROENDOCRINE TUMOUR
     Dosage: 30 MG, QMO, EVERY 4 WEEKS
     Route: 030
     Dates: start: 20150501

REACTIONS (17)
  - Crepitations [Unknown]
  - Pyrexia [Unknown]
  - Nervousness [Unknown]
  - Dizziness [Unknown]
  - Joint injury [Recovering/Resolving]
  - Pain in extremity [Recovering/Resolving]
  - Hepatic infection [Unknown]
  - Synovial cyst [Recovering/Resolving]
  - Pain [Unknown]
  - Asthenia [Unknown]
  - Malaise [Unknown]
  - Blood pressure systolic increased [Unknown]
  - Arthralgia [Unknown]
  - Disorientation [Unknown]
  - Post procedural infection [Recovering/Resolving]
  - Meniscus injury [Recovering/Resolving]
  - Blood pressure increased [Unknown]

NARRATIVE: CASE EVENT DATE: 2015
